FAERS Safety Report 13935928 (Version 3)
Quarter: 2018Q1

REPORT INFORMATION
  Report Type: Spontaneous
  Country: FR (occurrence: FR)
  Receive Date: 20170905
  Receipt Date: 20180214
  Transmission Date: 20180508
  Serious: Yes (Hospitalization, Disabling, Other)
  Sender: FDA-Public Use
  Company Number: FR-MERCK KGAA-2025545

PATIENT
  Age: 81 Year
  Sex: Female
  Weight: 90 kg

DRUGS (2)
  1. NOVOTHYROX [Suspect]
     Active Substance: LEVOTHYROXINE SODIUM
     Indication: HYPOTHYROIDISM
     Route: 048
     Dates: start: 20170707, end: 20170823
  2. PREVISCAN (FLUINDIONE) [Concomitant]
     Active Substance: FLUINDIONE
     Dates: start: 2012

REACTIONS (9)
  - Fatigue [None]
  - Dyspepsia [None]
  - Neurotoxicity [None]
  - Gait disturbance [Recovered/Resolved]
  - Mobility decreased [Not Recovered/Not Resolved]
  - Spinal cord compression [None]
  - Malaise [None]
  - Dysstasia [None]
  - Pain in extremity [None]

NARRATIVE: CASE EVENT DATE: 2017
